FAERS Safety Report 19769240 (Version 4)
Quarter: 2022Q1

REPORT INFORMATION
  Report Type: Report from Study
  Country: US (occurrence: US)
  Receive Date: 20210831
  Receipt Date: 20220119
  Transmission Date: 20220423
  Serious: No
  Sender: FDA-Public Use
  Company Number: NVSC2021US196174

PATIENT
  Age: 55 Year
  Sex: Female
  Weight: 97.52 kg

DRUGS (1)
  1. KESIMPTA [Suspect]
     Active Substance: OFATUMUMAB
     Indication: Relapsing-remitting multiple sclerosis
     Dosage: 20 MG, QMO BENEATH THE SKIN,USUALLY VIA INJECTION
     Route: 058
     Dates: start: 20210825

REACTIONS (9)
  - Pain [Recovered/Resolved]
  - Cough [Recovered/Resolved]
  - Rhinorrhoea [Recovered/Resolved]
  - Eye discharge [Recovered/Resolved]
  - Feeling abnormal [Recovered/Resolved]
  - Headache [Unknown]
  - Fatigue [Unknown]
  - Chills [Recovered/Resolved]
  - Pyrexia [Recovered/Resolved]

NARRATIVE: CASE EVENT DATE: 20210825
